FAERS Safety Report 4757996-8 (Version None)
Quarter: 2005Q3

REPORT INFORMATION
  Report Type: 
  Country: None (occurrence: None)
  Receive Date: 20050826
  Receipt Date: 20050511
  Transmission Date: 20060218
  Serious: No
  Sender: FDA-Public Use
  Company Number: WAES 0504USA01491

PATIENT
  Age: 63 Year
  Sex: Female
  Weight: 86.1834 kg

DRUGS (11)
  1. ZETIA [Suspect]
     Indication: BLOOD CHOLESTEROL INCREASED
     Dosage: 10 MG/DAILY/PO
     Route: 048
     Dates: start: 20050201, end: 20050411
  2. AMBIEN [Concomitant]
  3. AVALIDE [Concomitant]
  4. NEXIUM [Concomitant]
  5. PREMARIN [Concomitant]
  6. PROMETRIUM [Concomitant]
  7. WELLBUTRIN [Concomitant]
  8. ZELNORM [Concomitant]
  9. ZOCOR [Concomitant]
  10. ZOLOFT [Concomitant]
  11. HYDROCHLOROTHIAZIDE [Concomitant]

REACTIONS (5)
  - ARTHRALGIA [None]
  - ASTHENIA [None]
  - HEADACHE [None]
  - MYALGIA [None]
  - WEIGHT INCREASED [None]
